FAERS Safety Report 18388576 (Version 2)
Quarter: 2020Q4

REPORT INFORMATION
  Report Type: Spontaneous
  Country: US (occurrence: US)
  Receive Date: 20201015
  Receipt Date: 20201116
  Transmission Date: 20210114
  Serious: Yes (Other)
  Sender: FDA-Public Use
  Company Number: US-BAUSCH-BL-2020-028943

PATIENT
  Sex: Female

DRUGS (2)
  1. VYZULTA [Suspect]
     Active Substance: LATANOPROSTENE BUNOD
     Dosage: PURCHASED IN CANADA TWO MONTHS PRIOR
     Route: 047
     Dates: start: 2020
  2. VYZULTA [Suspect]
     Active Substance: LATANOPROSTENE BUNOD
     Indication: PRODUCT USED FOR UNKNOWN INDICATION
     Dosage: USING FOR ABOUT 16 MONTHS NOW FROM THE DATE OF REPORT
     Route: 047
     Dates: start: 2019

REACTIONS (9)
  - Arrhythmia [Unknown]
  - Presyncope [Unknown]
  - Incorrect dose administered [Unknown]
  - Asthenia [Unknown]
  - Product quality issue [Unknown]
  - Eye pain [Not Recovered/Not Resolved]
  - Product delivery mechanism issue [Unknown]
  - Illness [Unknown]
  - Insurance issue [Unknown]

NARRATIVE: CASE EVENT DATE: 2020
